FAERS Safety Report 23454857 (Version 2)
Quarter: 2024Q1

REPORT INFORMATION
  Report Type: Report from Study
  Country: ES (occurrence: ES)
  Receive Date: 20240130
  Receipt Date: 20240212
  Transmission Date: 20240410
  Serious: Yes (Hospitalization)
  Sender: FDA-Public Use
  Company Number: ES-ABBVIE-5607318

PATIENT
  Age: 72 Year
  Sex: Female
  Weight: 55 kg

DRUGS (2)
  1. CARBIDOPA\LEVODOPA [Suspect]
     Active Substance: CARBIDOPA\LEVODOPA
     Indication: Parkinson^s disease
     Route: 050
     Dates: start: 20171117
  2. CARBIDOPA\LEVODOPA [Suspect]
     Active Substance: CARBIDOPA\LEVODOPA

REACTIONS (8)
  - Cardiac failure [Recovering/Resolving]
  - Localised oedema [Recovering/Resolving]
  - Loss of personal independence in daily activities [Unknown]
  - Oedema peripheral [Recovered/Resolved]
  - Musculoskeletal disorder [Unknown]
  - Fatigue [Unknown]
  - Mobility decreased [Unknown]
  - Polyuria [Unknown]

NARRATIVE: CASE EVENT DATE: 20240101
